FAERS Safety Report 22321094 (Version 1)
Quarter: 2023Q2

REPORT INFORMATION
  Report Type: Spontaneous
  Country: CA (occurrence: CA)
  Receive Date: 20230515
  Receipt Date: 20230515
  Transmission Date: 20230721
  Serious: Yes (Other)
  Sender: FDA-Public Use
  Company Number: CA-AMERICAN REGENT INC-2023001150

PATIENT

DRUGS (1)
  1. VENOFER [Suspect]
     Active Substance: IRON SUCROSE
     Indication: Product used for unknown indication
     Dosage: 300 MILLIGRAM
     Route: 042

REACTIONS (10)
  - Troponin increased [Unknown]
  - Palpitations [Unknown]
  - Rash [Unknown]
  - Loss of consciousness [Unknown]
  - Bradycardia [Unknown]
  - Dizziness [Unknown]
  - Vomiting [Unknown]
  - Hypotension [Unknown]
  - Incorrect product administration duration [Unknown]
  - Product quality issue [Unknown]
